FAERS Safety Report 6198387-5 (Version None)
Quarter: 2009Q2

REPORT INFORMATION
  Report Type: 
  Country: None (occurrence: None)
  Receive Date: 20090521
  Receipt Date: 20090515
  Transmission Date: 20091009
  Serious: Yes (Other)
  Sender: FDA-Public Use
  Company Number: US-ASTRAZENECA-2007UW01789

PATIENT
  Age: 35 Year
  Sex: Female
  Weight: 63.5 kg

DRUGS (6)
  1. SEROQUEL [Suspect]
     Indication: SLEEP DISORDER
     Route: 048
     Dates: start: 19970101
  2. SEROQUEL [Suspect]
     Indication: ANXIETY
     Route: 048
     Dates: start: 19970101
  3. SEROQUEL [Suspect]
     Indication: DEPRESSION
     Route: 048
     Dates: start: 19970101
  4. RISPERDAL [Concomitant]
     Dates: start: 19990624, end: 20010420
  5. HALDOL [Concomitant]
     Dates: start: 20040101
  6. WELLBUTRIN [Concomitant]
     Dates: start: 19990101

REACTIONS (5)
  - ARTHROPATHY [None]
  - DIABETES MELLITUS [None]
  - MUSCULOSKELETAL DISORDER [None]
  - NEUROPATHY PERIPHERAL [None]
  - THROAT CANCER [None]
